FAERS Safety Report 9644848 (Version 2)
Quarter: 2014Q1

REPORT INFORMATION
  Report Type: Spontaneous
  Country: IN (occurrence: IN)
  Receive Date: 20131025
  Receipt Date: 20140131
  Transmission Date: 20141002
  Serious: Yes (Hospitalization)
  Sender: FDA-Public Use
  Company Number: PHHY2013IN117543

PATIENT
  Age: 66 Year
  Sex: Male

DRUGS (5)
  1. PHENYTOIN [Suspect]
     Indication: GRAND MAL CONVULSION
     Dosage: 300 MG, PER DAY
  2. CARBAMAZEPINE [Suspect]
     Indication: GRAND MAL CONVULSION
     Dosage: 800 MG/DAY
  3. VALPROIC ACID [Suspect]
     Indication: GRAND MAL CONVULSION
     Dosage: 900 MG/DAY
  4. LEVETIRACETAM [Suspect]
     Indication: GRAND MAL CONVULSION
     Dosage: 1000 MG/DAY
  5. PHENOBARBITONE [Suspect]
     Indication: GRAND MAL CONVULSION
     Dosage: 120 MG/DAY

REACTIONS (19)
  - Gliosis [Recovered/Resolved]
  - Nodal rhythm [Recovered/Resolved]
  - Somnolence [Recovered/Resolved]
  - Hyperhidrosis [Recovered/Resolved]
  - Hypopnoea [Recovered/Resolved]
  - Bradycardia [Recovered/Resolved]
  - Hypotension [Recovered/Resolved]
  - Ventricular hypertrophy [Recovered/Resolved]
  - Grand mal convulsion [Recovered/Resolved]
  - Confusional state [Recovered/Resolved]
  - Disorientation [Recovered/Resolved]
  - Ataxia [Recovered/Resolved]
  - Tremor [Recovered/Resolved]
  - Foot deformity [Recovered/Resolved]
  - Areflexia [Recovered/Resolved]
  - Cerebral atrophy [Recovered/Resolved]
  - Anticonvulsant drug level decreased [Recovered/Resolved]
  - Convulsion [Recovered/Resolved]
  - Ammonia increased [Recovered/Resolved]
